FAERS Safety Report 5011879-7 (Version None)
Quarter: 2006Q2

REPORT INFORMATION
  Report Type: 
  Country: None (occurrence: None)
  Receive Date: 20060526
  Receipt Date: 20060511
  Transmission Date: 20061013
  Serious: Yes (Hospitalization)
  Sender: FDA-Public Use
  Company Number: NL-SANOFI-SYNTHELABO-F01200601243

PATIENT
  Sex: Male
  Weight: 93 kg

DRUGS (5)
  1. SIMVASTATIN [Concomitant]
  2. CAPTOPRIL [Concomitant]
  3. AVASTIN [Suspect]
     Dosage: DOSE NOT SPECIFIED
     Route: 041
     Dates: start: 20060414, end: 20060414
  4. FLUOROURACIL [Suspect]
     Route: 042
     Dates: start: 20060412, end: 20060412
  5. OXALIPLATIN [Suspect]
     Indication: COLORECTAL CANCER METASTATIC
     Dosage: Q2W
     Route: 042
     Dates: start: 20060412, end: 20060412

REACTIONS (1)
  - LEUKOCYTOCLASTIC VASCULITIS [None]
